FAERS Safety Report 8797206 (Version 2)
Quarter: 2015Q1

REPORT INFORMATION
  Report Type: Report from Study
  Country: US (occurrence: US)
  Receive Date: 20120919
  Receipt Date: 20150323
  Transmission Date: 20150721
  Serious: Yes (Death)
  Sender: FDA-Public Use
  Company Number: US-ROCHE-1125844

PATIENT
  Age: 67 Year
  Sex: Male

DRUGS (2)
  1. GEMZAR [Concomitant]
     Active Substance: GEMCITABINE HYDROCHLORIDE
  2. AVASTIN [Suspect]
     Active Substance: BEVACIZUMAB
     Indication: PANCREATIC CARCINOMA
     Route: 065

REACTIONS (2)
  - Off label use [Unknown]
  - Death [Fatal]

NARRATIVE: CASE EVENT DATE: 20050311
